FAERS Safety Report 9521526 (Version 1)
Quarter: 2013Q3

REPORT INFORMATION
  Report Type: Report from Study
  Country: US (occurrence: US)
  Receive Date: 20130913
  Receipt Date: 20130913
  Transmission Date: 20140515
  Serious: Yes (Other)
  Sender: FDA-Public Use
  Company Number: US-JNJFOC-20130902754

PATIENT
  Sex: Female

DRUGS (1)
  1. REMICADE [Suspect]
     Indication: RHEUMATOID ARTHRITIS
     Route: 042
     Dates: start: 2013

REACTIONS (3)
  - Ear infection [Not Recovered/Not Resolved]
  - Hearing impaired [Not Recovered/Not Resolved]
  - Blister [Not Recovered/Not Resolved]
